FAERS Safety Report 24994563 (Version 1)
Quarter: 2025Q1

REPORT INFORMATION
  Report Type: Spontaneous
  Country: US (occurrence: US)
  Receive Date: 20250221
  Receipt Date: 20250221
  Transmission Date: 20250408
  Serious: Yes (Hospitalization)
  Sender: MYLAN
  Company Number: US-MYLANLABS-2025M1015206

PATIENT
  Age: 4 Decade
  Sex: Female

DRUGS (8)
  1. EPLERENONE [Suspect]
     Active Substance: EPLERENONE
     Indication: Primary hyperaldosteronism
     Dosage: 25 MILLIGRAM, BID
     Route: 065
  2. EPLERENONE [Suspect]
     Active Substance: EPLERENONE
     Dosage: 50 MILLIGRAM, BID
     Route: 065
  3. POTASSIUM [Suspect]
     Active Substance: POTASSIUM
     Indication: Hypokalaemia
     Dosage: 40 MILLIEQUIVALENT, TID
     Route: 048
  4. POTASSIUM [Suspect]
     Active Substance: POTASSIUM
     Indication: Primary hyperaldosteronism
     Dosage: 40 MILLIGRAM, QID
     Route: 048
  5. POTASSIUM [Suspect]
     Active Substance: POTASSIUM
     Route: 048
  6. NIFEDIPINE [Suspect]
     Active Substance: NIFEDIPINE
     Indication: Essential hypertension
     Dosage: 200 MILLIGRAM, QD (IN THE AFTERNOON)
     Route: 065
  7. LABETALOL [Suspect]
     Active Substance: LABETALOL
     Indication: Essential hypertension
     Dosage: 100 MILLIGRAM, BID
     Route: 065
  8. LABETALOL [Suspect]
     Active Substance: LABETALOL
     Dosage: 400 MILLIGRAM, BID
     Route: 065

REACTIONS (4)
  - Drug ineffective [Unknown]
  - Maternal exposure during pregnancy [Recovered/Resolved]
  - Normal newborn [Recovered/Resolved]
  - Off label use [Unknown]
